FAERS Safety Report 9401041 (Version 3)
Quarter: 2014Q1

REPORT INFORMATION
  Report Type: Spontaneous
  Country: GB (occurrence: GB)
  Receive Date: 20130715
  Receipt Date: 20140210
  Transmission Date: 20141002
  Serious: Yes (Hospitalization)
  Sender: FDA-Public Use
  Company Number: GB-WATSON-2013-12278

PATIENT
  Age: 15 Year
  Sex: Female
  Weight: 96 kg

DRUGS (4)
  1. METFORMIN (UNKNOWN) [Suspect]
     Indication: POLYCYSTIC OVARIES
     Dosage: UNK
     Route: 048
  2. MEFENAMIC ACID [Suspect]
     Indication: ABDOMINAL PAIN
     Dosage: UNK, PATIENT TAKING FOR ANY ABDOMINAL PAIN TWO/THREE TIMES PER DAY TWICE A WEEK
     Route: 048
     Dates: start: 201206, end: 201305
  3. RANITIDINE [Concomitant]
     Indication: PRODUCT USED FOR UNKNOWN INDICATION
     Dosage: UNK
     Route: 065
  4. MOVICOL                            /01749801/ [Concomitant]
     Indication: PRODUCT USED FOR UNKNOWN INDICATION
     Dosage: UNK
     Route: 065

REACTIONS (5)
  - Pancreatitis acute [Not Recovered/Not Resolved]
  - Nausea [Unknown]
  - Vomiting [Unknown]
  - Dizziness [Unknown]
  - Abdominal pain [Unknown]
